FAERS Safety Report 12603682 (Version 3)
Quarter: 2016Q3

REPORT INFORMATION
  Report Type: Report from Study
  Country: GR (occurrence: GR)
  Receive Date: 20160728
  Receipt Date: 20160811
  Transmission Date: 20161109
  Serious: Yes (Hospitalization)
  Sender: FDA-Public Use
  Company Number: GR-PFIZER INC-2016350892

PATIENT
  Age: 57 Year
  Sex: Male
  Weight: 64 kg

DRUGS (16)
  1. DUROGESIC [Concomitant]
     Active Substance: FENTANYL
     Indication: PAIN
     Dosage: 12 MG, 1X4
     Route: 062
     Dates: start: 20160624, end: 20160712
  2. LONALGAL [Concomitant]
     Active Substance: ACETAMINOPHEN\CODEINE PHOSPHATE
     Indication: PAIN
     Dosage: 500 + 30 MG, 1X4
     Route: 048
     Dates: start: 20160621
  3. ABSTRAL [Concomitant]
     Active Substance: FENTANYL CITRATE
     Indication: PAIN
     Dosage: 100 MG, IF PAIN EXACERBATION
     Route: 048
     Dates: start: 20160712
  4. FENISTIL [Concomitant]
     Active Substance: DIMETHINDENE
     Indication: ALLERGY PROPHYLAXIS
     Dosage: 1 MG, 1X2
     Route: 048
     Dates: start: 20160712, end: 20160715
  5. DEXAMETHASONE. [Concomitant]
     Active Substance: DEXAMETHASONE
     Indication: PREMEDICATION
  6. ZANTAC [Concomitant]
     Active Substance: RANITIDINE HYDROCHLORIDE
     Indication: PREMEDICATION
     Dosage: 150 MG, TWICE
     Route: 048
     Dates: start: 20160711, end: 20160712
  7. CARBOPLATIN. [Suspect]
     Active Substance: CARBOPLATIN
     Indication: NON-SMALL CELL LUNG CANCER
     Dosage: 810.7 MG, 1X1
     Route: 042
     Dates: start: 20160712, end: 20160712
  8. DUROGESIC [Concomitant]
     Active Substance: FENTANYL
     Dosage: 25 MG, EVERY 72 HOURS
     Route: 062
     Dates: start: 20160712
  9. BLINDED PF-06439535 [Suspect]
     Active Substance: INVESTIGATIONAL PRODUCT
     Indication: NON-SMALL CELL LUNG CANCER
     Dosage: 960 MG, EVERY 21 DAYS
     Route: 042
     Dates: start: 20160712
  10. ONDANSETRON [Concomitant]
     Active Substance: ONDANSETRON
     Indication: NAUSEA
     Dosage: 8 MG, 1X3
     Route: 048
     Dates: start: 20160712, end: 20160714
  11. ONDANSETRON [Concomitant]
     Active Substance: ONDANSETRON
     Indication: VOMITING
  12. BLINDED PF-06439535 [Suspect]
     Active Substance: INVESTIGATIONAL PRODUCT
     Indication: NON-SMALL CELL LUNG CANCER
     Dosage: 960 MG, EVERY 21 DAYS
     Route: 042
     Dates: start: 20160712
  13. BLINDED BEVACIZUMAB [Suspect]
     Active Substance: BEVACIZUMAB
     Indication: NON-SMALL CELL LUNG CANCER
     Dosage: 960 MG, EVERY 21 DAYS
     Route: 042
     Dates: start: 20160712
  14. BLINDED BEVACIZUMAB [Suspect]
     Active Substance: BEVACIZUMAB
     Indication: NON-SMALL CELL LUNG CANCER
     Dosage: 960 MG, EVERY 21 DAYS
     Route: 042
     Dates: start: 20160712
  15. TAXOL [Suspect]
     Active Substance: PACLITAXEL
     Indication: NON-SMALL CELL LUNG CANCER
     Dosage: 352 MG, 1X1
     Route: 042
     Dates: start: 20160712, end: 20160712
  16. DEXAMETHASONE. [Concomitant]
     Active Substance: DEXAMETHASONE
     Indication: ALLERGY PROPHYLAXIS
     Dosage: 8 MG, TWICE
     Route: 048
     Dates: start: 20160711, end: 20160712

REACTIONS (4)
  - Lower respiratory tract infection [Recovered/Resolved]
  - Hypoxia [Not Recovered/Not Resolved]
  - Productive cough [Not Recovered/Not Resolved]
  - Dyspnoea [Not Recovered/Not Resolved]

NARRATIVE: CASE EVENT DATE: 20160714
